FAERS Safety Report 7130381-X (Version None)
Quarter: 2010Q4

REPORT INFORMATION
  Report Type: 
  Country: None (occurrence: None)
  Receive Date: 20101201
  Receipt Date: 20101118
  Transmission Date: 20110411
  Serious: Yes (Hospitalization)
  Sender: FDA-Public Use
  Company Number: US-ELI_LILLY_AND_COMPANY-US201011004365

PATIENT
  Sex: Female

DRUGS (15)
  1. FORTEO [Suspect]
     Indication: OSTEOPOROSIS
     Dosage: 20 UG, DAILY (1/D)
  2. LEVOTHYROXINE SODIUM [Concomitant]
  3. CITALOPRAM [Concomitant]
  4. GABAPENTIN [Concomitant]
  5. FLOVENT [Concomitant]
  6. LANTUS [Concomitant]
  7. CHOLESTYRAMINE [Concomitant]
  8. ASPIRIN [Concomitant]
  9. NOVOLOG [Concomitant]
  10. FUROSEMIDE [Concomitant]
  11. SPIRIVA [Concomitant]
  12. CALCIUM WITH VITAMIN D [Concomitant]
  13. VITAMINS [Concomitant]
  14. HYDRALAZINE [Concomitant]
  15. PREDNISONE [Concomitant]

REACTIONS (4)
  - ANAEMIA [None]
  - BRONCHITIS [None]
  - FEELING ABNORMAL [None]
  - PNEUMONIA [None]
